FAERS Safety Report 7441070-6 (Version None)
Quarter: 2011Q2

REPORT INFORMATION
  Report Type: 
  Country: None (occurrence: None)
  Receive Date: 20110427
  Receipt Date: 20110421
  Transmission Date: 20111010
  Serious: Yes (Hospitalization)
  Sender: FDA-Public Use
  Company Number: FR-GENENTECH-261864

PATIENT
  Sex: Female
  Weight: 68 kg

DRUGS (10)
  1. RITUXIMAB [Suspect]
     Dosage: 600 MG, UNKNOWN
     Route: 042
     Dates: start: 20070613
  2. RITUXIMAB [Suspect]
     Dosage: 600 MG, UNKNOWN
     Route: 042
     Dates: start: 20070801
  3. RITUXIMAB [Suspect]
     Dosage: 665 MG, UNKNOWN
     Route: 042
     Dates: start: 20071226
  4. CYCLOPHOSPHAMIDE [Concomitant]
     Indication: PRODUCT USED FOR UNKNOWN INDICATION
     Dosage: 1050 MG, UNK
     Dates: start: 20070517
  5. RITUXIMAB [Suspect]
     Dosage: 600 MG, UNKNOWN
     Route: 042
     Dates: start: 20080507
  6. RITUXIMAB [Suspect]
     Indication: B-CELL LYMPHOMA
     Dosage: 600 MG, UNKNOWN
     Route: 042
     Dates: start: 20070517
  7. SOLUPRED [Concomitant]
     Indication: EAR PAIN
     Dosage: UNK
     Dates: start: 20080223, end: 20080229
  8. PYOSTACINE [Concomitant]
     Indication: EAR PAIN
     Dosage: UNK
     Dates: start: 20080223, end: 20080229
  9. FLUDARABINE [Concomitant]
     Indication: PRODUCT USED FOR UNKNOWN INDICATION
     Dosage: 132.75 MG, UNK
     Dates: start: 20070517
  10. LEVOTHYROXINE SODIUM [Concomitant]
     Indication: HYPOTHYROIDISM

REACTIONS (6)
  - URINARY TRACT INFECTION [None]
  - VIITH NERVE PARALYSIS [None]
  - BRONCHOPNEUMONIA [None]
  - HERPES ZOSTER [None]
  - BALANCE DISORDER [None]
  - ENCEPHALITIS HERPES [None]
